FAERS Safety Report 5736165-9 (Version None)
Quarter: 2008Q2

REPORT INFORMATION
  Report Type: 
  Country: None (occurrence: None)
  Receive Date: 20080508
  Receipt Date: 20080428
  Transmission Date: 20081010
  Serious: Yes (Hospitalization, Other)
  Sender: FDA-Public Use
  Company Number: 2008-02697

PATIENT
  Age: 49 Year
  Sex: Male

DRUGS (4)
  1. ACEBUTOLOL HYDROCHLORIDE [Suspect]
     Indication: DRUG USE FOR UNKNOWN INDICATION
     Dosage: ORAL
     Route: 048
  2. PERINDOPRIL ERBUMINE [Suspect]
     Indication: HYPERTENSION
     Dosage: 4 MG, DAILY, ORAL
     Route: 048
     Dates: start: 20050101, end: 20080304
  3. KARDEGIC       (ACETYLSALICYLATE LYSINE) [Suspect]
     Indication: DRUG USE FOR UNKNOWN INDICATION
     Dosage: 1 DOSAGE FORM QD
  4. ATORVASTATIN CALCIUM [Suspect]
     Indication: DRUG USE FOR UNKNOWN INDICATION
     Dosage: 2 DOSAGE FORM QD, ORAL
     Route: 048

REACTIONS (3)
  - MOUTH ULCERATION [None]
  - OESOPHAGEAL CARCINOMA [None]
  - PEMPHIGUS [None]
